FAERS Safety Report 10447015 (Version 1)
Quarter: 2014Q3

REPORT INFORMATION
  Report Type: Spontaneous
  Country: CH (occurrence: None)
  Receive Date: 20140909
  Receipt Date: 20140909
  Transmission Date: 20150326
  Serious: Yes (Hospitalization)
  Sender: FDA-Public Use
  Company Number: 2014090005

PATIENT
  Age: 82 Year
  Sex: Female

DRUGS (8)
  1. NEXIUM [Concomitant]
     Active Substance: ESOMEPRAZOLE MAGNESIUM
  2. ALDACTONE [Suspect]
     Active Substance: SPIRONOLACTONE
     Indication: OEDEMA PERIPHERAL
     Route: 048
     Dates: start: 20140616, end: 20140722
  3. TEMGESIC (BUPRENORPHINE HYDROCHLORIDE) [Concomitant]
  4. DAFALGAN (PARACETAMOL) [Concomitant]
  5. VENLAFAXINE [Concomitant]
     Active Substance: VENLAFAXINE HYDROCHLORIDE
  6. TRANSTEC (BUPRENORPHINE) [Concomitant]
  7. TOREM (TORASEMIDE) [Suspect]
     Active Substance: TORSEMIDE
     Indication: OEDEMA PERIPHERAL
     Route: 048
     Dates: start: 20140616, end: 20140722
  8. XARELTO [Concomitant]
     Active Substance: RIVAROXABAN

REACTIONS (3)
  - Rash maculo-papular [None]
  - Rash erythematous [None]
  - Fall [None]

NARRATIVE: CASE EVENT DATE: 20140722
